FAERS Safety Report 7508825-0 (Version None)
Quarter: 2011Q2

REPORT INFORMATION
  Report Type: 
  Country: None (occurrence: None)
  Receive Date: 20110527
  Receipt Date: 20091122
  Transmission Date: 20111010
  Serious: Yes (Death, Other)
  Sender: FDA-Public Use
  Company Number: US-BAYER-200940242NA

PATIENT
  Age: 70 Year
  Sex: Female
  Weight: 82 kg

DRUGS (14)
  1. ACETYLSALICYLIC ACID SRT [Concomitant]
     Dosage: 325/DAILY
     Route: 048
     Dates: start: 20051101
  2. TRASYLOL [Suspect]
     Indication: AORTIC ANEURYSM REPAIR
     Dosage: 100ML THEN 25CC/HOUR
     Route: 042
     Dates: end: 20051202
  3. LIPITOR [Concomitant]
     Dosage: 20 MG, QD
     Route: 048
  4. TORADOL [Concomitant]
     Dosage: UNK
     Route: 048
     Dates: start: 20051101
  5. INSULIN [Concomitant]
     Dosage: UNK
     Dates: start: 20051202
  6. LOPRESSOR [Concomitant]
     Dosage: 12.5 MG, QD
     Route: 048
     Dates: start: 20051101
  7. HEPARIN [Concomitant]
     Dosage: 28,000 UNITS
     Dates: start: 20051202, end: 20051202
  8. VERSED [Concomitant]
     Dosage: 2 MG
     Route: 042
     Dates: start: 20051202
  9. TRASYLOL [Suspect]
     Indication: AORTIC VALVE REPLACEMENT
     Dosage: 1 ML INITIAL TEST DOSE
     Route: 042
     Dates: start: 20051202
  10. LOTREL [Concomitant]
     Dosage: 5/20MG/DAILY
     Route: 048
  11. COUMADIN [Concomitant]
     Dosage: 5MG/DAILY
     Route: 048
     Dates: start: 20051101
  12. ZEMURON [Concomitant]
     Dosage: UNK
     Dates: start: 20051202
  13. LEVAQUIN [Concomitant]
     Dosage: 500 MG, QD
     Route: 048
     Dates: start: 20051101, end: 20051104
  14. ANCEF [Concomitant]
     Dosage: 1 GRAM
     Route: 042
     Dates: start: 20051202, end: 20051202

REACTIONS (15)
  - DEATH [None]
  - MULTI-ORGAN FAILURE [None]
  - ANXIETY [None]
  - UNEVALUABLE EVENT [None]
  - RENAL FAILURE [None]
  - ANHEDONIA [None]
  - PSYCHIATRIC SYMPTOM [None]
  - RENAL IMPAIRMENT [None]
  - STRESS [None]
  - RENAL INJURY [None]
  - EMOTIONAL DISTRESS [None]
  - FEAR [None]
  - PAIN [None]
  - INJURY [None]
  - RENAL FAILURE ACUTE [None]
